FAERS Safety Report 6617491-8 (Version None)
Quarter: 2010Q1

REPORT INFORMATION
  Report Type: 
  Country: None (occurrence: None)
  Receive Date: 20100302
  Receipt Date: 20100216
  Transmission Date: 20100710
  Serious: Yes (Hospitalization)
  Sender: FDA-Public Use
  Company Number: 20100079

PATIENT
  Age: 75 Year
  Sex: Female

DRUGS (7)
  1. EPINEPHRINE [Suspect]
     Indication: NERVE BLOCK
     Dosage: INJECTION NOS
  2. LEVOBUPIVACAINE 0.375% [Suspect]
     Indication: NERVE BLOCK
     Dosage: INJECTION NOS
  3. MIDAZOLAM HCL [Concomitant]
  4. ALFENTANIL [Concomitant]
  5. LOCAL ANESTHETIC [Concomitant]
  6. SEVOFLURANE [Concomitant]
  7. PROPOFOL [Concomitant]

REACTIONS (3)
  - DRUG EFFECT PROLONGED [None]
  - ISCHAEMIA [None]
  - NERVE COMPRESSION [None]
